FAERS Safety Report 5713618-0 (Version None)
Quarter: 2008Q2

REPORT INFORMATION
  Report Type: 
  Country: None (occurrence: None)
  Receive Date: 20080418
  Receipt Date: 20080411
  Transmission Date: 20081010
  Serious: Yes (Hospitalization)
  Sender: FDA-Public Use
  Company Number: 2008-02391

PATIENT
  Age: 52 Year
  Sex: Male

DRUGS (2)
  1. METOCLOPRAMIDE [Suspect]
     Indication: HICCUPS
     Dosage: 50 MG, SINGLE, INTRAMUSCULAR
     Route: 030
  2. METOCLOPRAMIDE [Suspect]
     Indication: NAUSEA
     Dosage: 50 MG, SINGLE, INTRAMUSCULAR
     Route: 030

REACTIONS (1)
  - TOXIC EPIDERMAL NECROLYSIS [None]
